FAERS Safety Report 10042236 (Version 1)
Quarter: 2014Q1

REPORT INFORMATION
  Report Type: Spontaneous
  Country: GB (occurrence: GB)
  Receive Date: 20140327
  Receipt Date: 20140327
  Transmission Date: 20141002
  Serious: Yes (Other)
  Sender: FDA-Public Use
  Company Number: GB-ABBVIE-14K-167-1215206-00

PATIENT
  Age: 47 Year
  Sex: Male
  Weight: 68 kg

DRUGS (8)
  1. RITONAVIR [Suspect]
     Indication: HIV INFECTION
     Route: 048
     Dates: start: 2005
  2. TRIAMCINOLONE ACETONIDE [Interacting]
     Indication: OSTEOARTHRITIS
     Dosage: UNSURE
     Route: 014
     Dates: start: 201402, end: 201402
  3. CETIRIZINE [Concomitant]
     Indication: PRODUCT USED FOR UNKNOWN INDICATION
  4. DARUNAVIR [Concomitant]
     Indication: PRODUCT USED FOR UNKNOWN INDICATION
  5. DOMPERIDONE [Concomitant]
     Indication: PRODUCT USED FOR UNKNOWN INDICATION
  6. KIVEXA [Concomitant]
     Indication: PRODUCT USED FOR UNKNOWN INDICATION
  7. SERTRALINE [Concomitant]
     Indication: PRODUCT USED FOR UNKNOWN INDICATION
  8. TRAMADOL [Concomitant]
     Indication: PRODUCT USED FOR UNKNOWN INDICATION

REACTIONS (3)
  - Potentiating drug interaction [Unknown]
  - Adrenal suppression [Unknown]
  - Blood cortisol decreased [Unknown]
